FAERS Safety Report 7190137-9 (Version None)
Quarter: 2010Q4

REPORT INFORMATION
  Report Type: 
  Country: None (occurrence: None)
  Receive Date: 20101223
  Receipt Date: 20101217
  Transmission Date: 20110411
  Serious: Yes (Other)
  Sender: FDA-Public Use
  Company Number: JP-BRISTOL-MYERS SQUIBB COMPANY-15420128

PATIENT
  Age: 7 Decade
  Sex: Female

DRUGS (2)
  1. MAXIPIME [Suspect]
     Route: 041
     Dates: start: 20100101, end: 20100101
  2. EXCEGRAN [Suspect]

REACTIONS (1)
  - RENAL IMPAIRMENT [None]
